FAERS Safety Report 7157718-X (Version None)
Quarter: 2010Q4

REPORT INFORMATION
  Report Type: 
  Country: None (occurrence: None)
  Receive Date: 20101214
  Receipt Date: 20100217
  Transmission Date: 20110411
  Serious: No
  Sender: FDA-Public Use
  Company Number: US-ASTRAZENECA-2010SE03840

PATIENT
  Age: 70 Year
  Sex: Female

DRUGS (3)
  1. CRESTOR [Suspect]
     Route: 048
     Dates: start: 20091201
  2. ASPIRIN [Concomitant]
  3. VITAMINS [Concomitant]

REACTIONS (9)
  - CERUMEN IMPACTION [None]
  - DEPRESSION [None]
  - DRY SKIN [None]
  - HYPERTENSION [None]
  - MUSCULAR WEAKNESS [None]
  - MUSCULOSKELETAL PAIN [None]
  - NASOPHARYNGITIS [None]
  - PAIN IN EXTREMITY [None]
  - THIRST [None]
